FAERS Safety Report 18990254 (Version 2)
Quarter: 2021Q2

REPORT INFORMATION
  Report Type: Report from Study
  Country: FR (occurrence: FR)
  Receive Date: 20210310
  Receipt Date: 20210608
  Transmission Date: 20210717
  Serious: Yes (Other)
  Sender: FDA-Public Use
  Company Number: FR-JNJFOC-20201242713

PATIENT
  Age: 35 Year
  Sex: Male

DRUGS (27)
  1. SPRAVATO [Suspect]
     Active Substance: ESKETAMINE
     Dates: start: 20201123, end: 20201123
  2. SPRAVATO [Suspect]
     Active Substance: ESKETAMINE
     Dates: start: 20201211, end: 20201211
  3. SPRAVATO [Suspect]
     Active Substance: ESKETAMINE
     Dates: start: 20210121, end: 20210121
  4. LAMOTRIGINE. [Concomitant]
     Active Substance: LAMOTRIGINE
     Indication: DRUG THERAPY
     Route: 065
     Dates: start: 20200909
  5. SPRAVATO [Suspect]
     Active Substance: ESKETAMINE
     Dates: start: 20201221, end: 20201221
  6. SPRAVATO [Suspect]
     Active Substance: ESKETAMINE
     Dates: start: 20201228, end: 20201228
  7. SERTRALINE [Concomitant]
     Active Substance: SERTRALINE HYDROCHLORIDE
     Indication: ANTIDEPRESSANT THERAPY
     Route: 065
  8. OXAZEPAM. [Concomitant]
     Active Substance: OXAZEPAM
     Indication: ANXIOLYTIC THERAPY
     Route: 065
     Dates: end: 20201217
  9. SPRAVATO [Suspect]
     Active Substance: ESKETAMINE
     Dates: start: 20210112, end: 20210112
  10. SERTRALINE [Concomitant]
     Active Substance: SERTRALINE HYDROCHLORIDE
     Route: 065
     Dates: start: 20201130
  11. VENLAFAXINE [Concomitant]
     Active Substance: VENLAFAXINE HYDROCHLORIDE
     Indication: ANTIDEPRESSANT THERAPY
     Route: 065
  12. OXAZEPAM. [Concomitant]
     Active Substance: OXAZEPAM
     Route: 065
     Dates: start: 20201217
  13. SPRAVATO [Suspect]
     Active Substance: ESKETAMINE
     Indication: DEPRESSION
     Dates: start: 20201117, end: 20201117
  14. SPRAVATO [Suspect]
     Active Substance: ESKETAMINE
     Dates: start: 20201217, end: 20201217
  15. SPRAVATO [Suspect]
     Active Substance: ESKETAMINE
     Dates: start: 20210202, end: 20210202
  16. VALPROIC ACID. [Concomitant]
     Active Substance: VALPROIC ACID
     Indication: ANTIDEPRESSANT THERAPY
     Route: 065
  17. PRAMIPEXOLE. [Concomitant]
     Active Substance: PRAMIPEXOLE
     Indication: SEDATIVE THERAPY
     Route: 065
     Dates: start: 20200909
  18. SPRAVATO [Suspect]
     Active Substance: ESKETAMINE
     Dates: start: 20201127, end: 20201127
  19. SPRAVATO [Suspect]
     Active Substance: ESKETAMINE
     Dates: start: 20210105, end: 20210105
  20. SPRAVATO [Suspect]
     Active Substance: ESKETAMINE
     Dates: start: 20210126, end: 20210126
  21. SPRAVATO [Suspect]
     Active Substance: ESKETAMINE
     Dates: start: 20201119, end: 20201119
  22. SPRAVATO [Suspect]
     Active Substance: ESKETAMINE
     Dates: start: 20201203, end: 20201203
  23. SPRAVATO [Suspect]
     Active Substance: ESKETAMINE
     Dates: start: 20201208, end: 20201208
  24. SERTRALINE [Concomitant]
     Active Substance: SERTRALINE HYDROCHLORIDE
     Route: 065
     Dates: start: 20200930
  25. PAROXETINE. [Concomitant]
     Active Substance: PAROXETINE
     Indication: ANTIDEPRESSANT THERAPY
     Route: 065
  26. LITHIUM. [Concomitant]
     Active Substance: LITHIUM
     Indication: ANTIDEPRESSANT THERAPY
     Route: 065
  27. PRAMIPEXOLE. [Concomitant]
     Active Substance: PRAMIPEXOLE
     Route: 065
     Dates: start: 20200930

REACTIONS (4)
  - Drug dependence [Unknown]
  - Blood pressure increased [Recovered/Resolved]
  - Somnolence [Recovered/Resolved]
  - Nausea [Unknown]

NARRATIVE: CASE EVENT DATE: 20201119
